FAERS Safety Report 24545347 (Version 2)
Quarter: 2024Q4

REPORT INFORMATION
  Report Type: Spontaneous
  Country: CN (occurrence: CN)
  Receive Date: 20241024
  Receipt Date: 20241106
  Transmission Date: 20250115
  Serious: Yes (Death)
  Sender: BAYER HEALTHCARE PHARMACEUTICALS INC.
  Company Number: CN-BAYER-2024A152200

PATIENT
  Age: 74 Year
  Sex: Female

DRUGS (1)
  1. ULTRAVIST [Suspect]
     Active Substance: IOPROMIDE
     Indication: Computerised tomogram abdomen
     Dosage: 1.5 GRAMS OF IODINE PER KILOGRAM OF BODY WEIGHT, ONCE
     Route: 042
     Dates: start: 20241023, end: 20241023

REACTIONS (2)
  - Loss of consciousness [Fatal]
  - Pharyngeal oedema [Fatal]

NARRATIVE: CASE EVENT DATE: 20241023
